FAERS Safety Report 9275386 (Version 2)
Quarter: 2013Q4

REPORT INFORMATION
  Report Type: Spontaneous
  Country: BR (occurrence: None)
  Receive Date: 20130430
  Receipt Date: 20131029
  Transmission Date: 20140711
  Serious: Yes (Other)
  Sender: FDA-Public Use
  Company Number: ENTC2013-0157

PATIENT
  Sex: Female

DRUGS (3)
  1. STALEVO [Suspect]
     Indication: PARKINSON^S DISEASE
     Dosage: 4 TABLETS A DAY
     Route: 048
     Dates: end: 2008
  2. SIFROL [Concomitant]
  3. FRONTAL [Concomitant]

REACTIONS (4)
  - Parkinson^s disease [None]
  - Product quality issue [None]
  - Drug ineffective [None]
  - Product packaging issue [None]
